FAERS Safety Report 25066326 (Version 1)
Quarter: 2025Q1

REPORT INFORMATION
  Report Type: Spontaneous
  Country: JP (occurrence: JP)
  Receive Date: 20250312
  Receipt Date: 20250312
  Transmission Date: 20250408
  Serious: Yes (Other)
  Sender: JOHNSON AND JOHNSON
  Company Number: JP-JNJFOC-20250221912

PATIENT
  Age: 75 Year
  Sex: Male

DRUGS (1)
  1. RISPERDAL [Suspect]
     Active Substance: RISPERIDONE
     Indication: Sedation
     Dosage: AT BEDTIME
     Route: 048

REACTIONS (3)
  - Malignant neoplasm progression [Unknown]
  - Hypersomnia [Unknown]
  - Off label use [Unknown]
